FAERS Safety Report 23423159 (Version 1)
Quarter: 2024Q1

REPORT INFORMATION
  Report Type: Spontaneous
  Country: CN (occurrence: None)
  Receive Date: 20240119
  Receipt Date: 20240119
  Transmission Date: 20240410
  Serious: Yes (Other)
  Sender: FDA-Public Use
  Company Number: 2024A013730

PATIENT
  Age: 58 Year
  Sex: Female

DRUGS (2)
  1. OLAPARIB [Suspect]
     Active Substance: OLAPARIB
     Indication: Ovarian cancer
     Dosage: 300 MG, BID; INDICATION: HIGH GRADE SEROUS OVARIAN CARCINOMA STAGE IVA
     Route: 048
     Dates: start: 2021
  2. BEVACIZUMAB [Suspect]
     Active Substance: BEVACIZUMAB
     Indication: Ovarian cancer
     Dosage: UNK
     Dates: start: 2021, end: 2022

REACTIONS (4)
  - Cholecystitis chronic [Unknown]
  - Liver injury [Unknown]
  - Pleural thickening [Unknown]
  - Hepatic steatosis [Unknown]

NARRATIVE: CASE EVENT DATE: 20210101
